FAERS Safety Report 6424722-6 (Version None)
Quarter: 2009Q4

REPORT INFORMATION
  Report Type: 
  Country: None (occurrence: None)
  Receive Date: 20091028
  Receipt Date: 20090318
  Transmission Date: 20100525
  Serious: Yes (Other)
  Sender: FDA-Public Use
  Company Number: 623587

PATIENT
  Age: 51 Year
  Sex: Female
  Weight: 47.6 kg

DRUGS (5)
  1. ALEVE [Suspect]
     Indication: HEADACHE
     Dosage: 220 MG DAILY ORAL
     Route: 048
     Dates: start: 20090107, end: 20090107
  2. ANAPROX [Suspect]
     Indication: DRUG USE FOR UNKNOWN INDICATION
  3. ASPIRIN [Suspect]
     Indication: DRUG USE FOR UNKNOWN INDICATION
     Dosage: ORAL
     Route: 048
  4. TYLENOL [Concomitant]
  5. ADVIL [Concomitant]

REACTIONS (2)
  - ABDOMINAL DISCOMFORT [None]
  - ANAPHYLACTIC REACTION [None]
